FAERS Safety Report 4846947-3 (Version None)
Quarter: 2005Q4

REPORT INFORMATION
  Report Type: 
  Country: None (occurrence: None)
  Receive Date: 20051202
  Receipt Date: 20051121
  Transmission Date: 20060501
  Serious: Yes (Other)
  Sender: FDA-Public Use
  Company Number: 2005-00964FE

PATIENT
  Sex: Female

DRUGS (2)
  1. MENOPUR [Suspect]
  2. BUSERELIN (BUSERELIN) [Suspect]

REACTIONS (1)
  - VESTIBULAR NEURONITIS [None]
